FAERS Safety Report 11737666 (Version 1)
Quarter: 2015Q4

REPORT INFORMATION
  Report Type: Spontaneous
  Country: US (occurrence: None)
  Receive Date: 20151112
  Receipt Date: 20151112
  Transmission Date: 20160304
  Serious: No
  Sender: FDA-Public Use
  Company Number: None

PATIENT
  Age: 61 Year
  Sex: Female
  Weight: 74.84 kg

DRUGS (2)
  1. LEVOTHYROXINE. [Concomitant]
     Active Substance: LEVOTHYROXINE
  2. BACTRIM [Suspect]
     Active Substance: SULFAMETHOXAZOLE\TRIMETHOPRIM
     Indication: SINUSITIS
     Route: 048
     Dates: start: 20151103, end: 20151106

REACTIONS (13)
  - Anxiety [None]
  - Eye swelling [None]
  - Drug hypersensitivity [None]
  - Wheezing [None]
  - Muscular weakness [None]
  - Rash generalised [None]
  - Ocular hyperaemia [None]
  - Arthralgia [None]
  - Dyspnoea [None]
  - Oropharyngeal pain [None]
  - Fatigue [None]
  - Chest pain [None]
  - Headache [None]

NARRATIVE: CASE EVENT DATE: 20151106
